FAERS Safety Report 6566213-8 (Version None)
Quarter: 2010Q1

REPORT INFORMATION
  Report Type: 
  Country: None (occurrence: None)
  Receive Date: 20100127
  Receipt Date: 20100115
  Transmission Date: 20100710
  Serious: Yes (Hospitalization)
  Sender: FDA-Public Use
  Company Number: 005122

PATIENT
  Sex: Female
  Weight: 52.2 kg

DRUGS (8)
  1. CIMZIA [Suspect]
     Indication: CROHN'S DISEASE
     Dosage: SUBCUTANEOUS
     Route: 058
     Dates: start: 20080101
  2. PREDNISONE [Concomitant]
  3. VALIUM [Concomitant]
  4. LORTAB [Concomitant]
  5. METOPROLOL TARTRATE [Concomitant]
  6. ADVAIR DISKUS 100/50 [Concomitant]
  7. AMITRIPTYLINE HCL [Concomitant]
  8. SEROQUEL [Concomitant]

REACTIONS (2)
  - FALL [None]
  - LOSS OF CONSCIOUSNESS [None]
